FAERS Safety Report 19189402 (Version 2)
Quarter: 2021Q3

REPORT INFORMATION
  Report Type: Spontaneous
  Country: US (occurrence: US)
  Receive Date: 20210428
  Receipt Date: 20210730
  Transmission Date: 20211014
  Serious: Yes (Other)
  Sender: FDA-Public Use
  Company Number: US-GLAXOSMITHKLINE-US2021GSK093675

PATIENT
  Sex: Male
  Weight: 99.77 kg

DRUGS (3)
  1. ZANTAC [Suspect]
     Active Substance: RANITIDINE HYDROCHLORIDE
     Indication: DYSPEPSIA
     Dosage: 120 MG
     Route: 065
     Dates: start: 199401, end: 202002
  2. RANITIDINE HYDROCHLORIDE. [Suspect]
     Active Substance: RANITIDINE HYDROCHLORIDE
     Indication: PRODUCT USED FOR UNKNOWN INDICATION
     Dosage: UNK
     Route: 065
  3. ZANTAC [Suspect]
     Active Substance: RANITIDINE HYDROCHLORIDE
     Indication: DYSPEPSIA
     Dosage: 120 MG
     Route: 065
     Dates: start: 199401, end: 202002

REACTIONS (4)
  - Throat cancer [Unknown]
  - Neoplasm malignant [Unknown]
  - Oesophageal carcinoma [Unknown]
  - Nasal cavity cancer [Unknown]
